FAERS Safety Report 9245126 (Version 1)
Quarter: 2013Q2

REPORT INFORMATION
  Report Type: Report from Study
  Country: AU (occurrence: AU)
  Receive Date: 20130422
  Receipt Date: 20130422
  Transmission Date: 20140414
  Serious: Yes (Other)
  Sender: FDA-Public Use
  Company Number: PHHY2013AU037431

PATIENT
  Sex: Male

DRUGS (3)
  1. CLOZAPINE [Suspect]
  2. RISPERIDONE SANDOZ [Suspect]
  3. VENLAFAXINE HYDROCHLORIDE [Suspect]

REACTIONS (7)
  - Left ventricular dysfunction [Unknown]
  - Condition aggravated [Unknown]
  - Troponin increased [Unknown]
  - C-reactive protein increased [Unknown]
  - Pyrexia [Unknown]
  - Blood creatine phosphokinase increased [Unknown]
  - Tachycardia [Unknown]
